FAERS Safety Report 18163252 (Version 4)
Quarter: 2021Q3

REPORT INFORMATION
  Report Type: Spontaneous
  Country: FR (occurrence: FR)
  Receive Date: 20200818
  Receipt Date: 20210721
  Transmission Date: 20211014
  Serious: Yes (Death, Hospitalization, Other)
  Sender: FDA-Public Use
  Company Number: FR-MYLANLABS-2020M1065724

PATIENT
  Age: 30 Year
  Sex: Female

DRUGS (19)
  1. METHYLPREDNISOLONE. [Suspect]
     Active Substance: METHYLPREDNISOLONE
     Indication: DEMYELINATION
     Dosage: 1 GRAM, QD
     Route: 065
  2. RITUXIMAB. [Suspect]
     Active Substance: RITUXIMAB
     Dosage: 375 MILLIGRAM/SQ. METER (375 MG/M2 (620 MG) FOUR INFUSIONS (INFUSION 3))
     Route: 042
     Dates: start: 201507
  3. METHYLPREDNISOLONE. [Suspect]
     Active Substance: METHYLPREDNISOLONE
     Indication: ENTEROVIRUS INFECTION
     Dosage: UNK
  4. RITUXIMAB. [Suspect]
     Active Substance: RITUXIMAB
     Dosage: 1 GRAM (1 G EVERY 6 MONTHS)
     Route: 051
     Dates: start: 201803, end: 201809
  5. FLUOXETINE [Concomitant]
     Active Substance: FLUOXETINE HYDROCHLORIDE
     Dosage: UNK
  6. PREDNISOLONE. [Suspect]
     Active Substance: PREDNISOLONE
     Indication: ENTEROVIRUS INFECTION
     Dosage: 60 MILLIGRAM
     Route: 048
  7. RITUXIMAB. [Suspect]
     Active Substance: RITUXIMAB
     Indication: ANTIBODY TEST ABNORMAL
     Dosage: 1 GRAM, (1 G EVERY 6 MONTHS)
     Route: 042
     Dates: start: 201606, end: 201706
  8. RITUXIMAB. [Suspect]
     Active Substance: RITUXIMAB
     Dosage: 1000 MILLIGRAM
     Route: 065
  9. RITUXIMAB. [Suspect]
     Active Substance: RITUXIMAB
     Dosage: 1 GRAM (1 G EVERY 6 MONTHS)
     Route: 065
     Dates: start: 201607, end: 201706
  10. RITUXIMAB. [Suspect]
     Active Substance: RITUXIMAB
     Dosage: MONOTHERAPY FOR 3 YEARS
  11. TYSABRI [Suspect]
     Active Substance: NATALIZUMAB
     Indication: MULTIPLE SCLEROSIS
     Dosage: UNK
     Route: 065
     Dates: start: 201306, end: 201410
  12. RITUXIMAB. [Suspect]
     Active Substance: RITUXIMAB
     Indication: NEUROMYELITIS OPTICA SPECTRUM DISORDER
     Dosage: 1 GRAM
     Route: 042
     Dates: start: 201803
  13. RITUXIMAB. [Suspect]
     Active Substance: RITUXIMAB
     Dosage: 1 GRAM
     Route: 065
     Dates: start: 201809
  14. RITUXIMAB. [Suspect]
     Active Substance: RITUXIMAB
     Indication: DEMYELINATION
     Dosage: 375 MILLIGRAM/SQ. METER (FOUR INFUSIONS)
     Route: 042
     Dates: start: 201507
  15. RITUXIMAB. [Suspect]
     Active Substance: RITUXIMAB
     Dosage: 1000 MILLIGRAM
     Route: 042
     Dates: start: 201809
  16. RITUXIMAB. [Suspect]
     Active Substance: RITUXIMAB
     Dosage: 620 MILLIGRAM
     Route: 065
     Dates: start: 201507
  17. PREDNISOLONE. [Suspect]
     Active Substance: PREDNISOLONE
     Indication: DEMYELINATION
     Dosage: UNK
     Route: 048
  18. RITUXIMAB. [Suspect]
     Active Substance: RITUXIMAB
     Dosage: 1 GRAM
     Route: 042
  19. RITUXIMAB. [Suspect]
     Active Substance: RITUXIMAB
     Dosage: 375 MILLIGRAM/SQ. METER (375 MG/M2 (620 MG) FOUR INFUSIONS (INFUSION 1)/ 620MG UNK)
     Route: 065
     Dates: start: 201507

REACTIONS (26)
  - Ataxia [Fatal]
  - Bacterial sepsis [Fatal]
  - Respiratory failure [Fatal]
  - Dysarthria [Fatal]
  - Myelitis [Fatal]
  - Autoimmune demyelinating disease [Fatal]
  - Coxsackie myocarditis [Fatal]
  - Meningitis enteroviral [Fatal]
  - Dysmetria [Fatal]
  - Neurological decompensation [Fatal]
  - Renal failure [Unknown]
  - Off label use [Unknown]
  - Arrhythmia [Fatal]
  - Sepsis [Unknown]
  - Pregnancy [Unknown]
  - Intentional product use issue [Fatal]
  - Coxsackie viral infection [Fatal]
  - Optic neuritis [Fatal]
  - Meningitis coxsackie viral [Fatal]
  - Therapeutic product effect incomplete [Fatal]
  - Viral myocarditis [Fatal]
  - Vomiting [Fatal]
  - Cardiogenic shock [Fatal]
  - Maternal exposure during pregnancy [Unknown]
  - Nausea [Fatal]
  - Product use in unapproved indication [Fatal]

NARRATIVE: CASE EVENT DATE: 2015
